FAERS Safety Report 9229200 (Version 2)
Quarter: 2018Q1

REPORT INFORMATION
  Report Type: Report from Study
  Country: US (occurrence: US)
  Receive Date: 20130412
  Receipt Date: 20180119
  Transmission Date: 20180509
  Serious: Yes (Other)
  Sender: FDA-Public Use
  Company Number: US-ASTELLAS-2012US010077

PATIENT
  Age: 70 Year
  Sex: Female

DRUGS (2)
  1. TACROLIMUS. [Suspect]
     Active Substance: TACROLIMUS
     Indication: LIVER TRANSPLANT
     Dosage: 1.5 MG (1 MG + 0.5 MG), TWICE DAILY
     Route: 048
     Dates: start: 20110616
  2. TACROLIMUS. [Suspect]
     Active Substance: TACROLIMUS
     Indication: LIVER TRANSPLANT
     Dosage: 1.5 MG (1 MG + 0.5 MG), TWICE DAILY
     Route: 048
     Dates: start: 20110616

REACTIONS (5)
  - Abdominal pain upper [Not Recovered/Not Resolved]
  - Abdominal distension [Not Recovered/Not Resolved]
  - Mental impairment [Unknown]
  - Nausea [Not Recovered/Not Resolved]
  - Cerebral disorder [Unknown]

NARRATIVE: CASE EVENT DATE: 20180111
